FAERS Safety Report 7124318 (Version 4)
Quarter: 2015Q1

REPORT INFORMATION
  Report Type: Spontaneous
  Country: GR (occurrence: None)
  Receive Date: 20090910
  Receipt Date: 20150309
  Transmission Date: 20150721
  Serious: Yes (Hospitalization)
  Sender: FDA-Public Use
  Company Number: 2009002590

PATIENT
  Age: 59 Year
  Sex: Female

DRUGS (12)
  1. OMEPRAZOLE. [Concomitant]
     Active Substance: OMEPRAZOLE
  2. ONDANSETRON HYDROCHLORIDE. [Concomitant]
     Active Substance: ONDANSETRON HYDROCHLORIDE
  3. DEXAMETHASONE (DEXAMETHASONE) [Concomitant]
     Active Substance: DEXAMETHASONE
  4. LEXOMIL (BROMAZEPAM) [Concomitant]
     Active Substance: BROMAZEPAM
  5. GRANULOKINE (FILGRASTIM) [Concomitant]
  6. TARCEVA [Suspect]
     Active Substance: ERLOTINIB HYDROCHLORIDE
     Indication: LUNG NEOPLASM MALIGNANT
     Dosage: 150 MG, ONCE DAILY, ORAL
     Route: 048
     Dates: start: 20090629, end: 20090712
  7. TAXOTERE [Suspect]
     Active Substance: DOCETAXEL
     Indication: LUNG NEOPLASM MALIGNANT
     Dosage: UNK, INTRAVENOUS
     Route: 042
     Dates: start: 20090626, end: 20090717
  8. ARANESP [Concomitant]
     Active Substance: DARBEPOETIN ALFA
  9. BISOPROLOL FUMARATE. [Concomitant]
     Active Substance: BISOPROLOL FUMARATE
  10. MEDROL [Concomitant]
     Active Substance: METHYLPREDNISOLONE
  11. DIORAN (CHLORMEZANONE, IBUPROFEN, METAMIZOLE SODIUM)) [Concomitant]
  12. CARVEDILOL. [Concomitant]
     Active Substance: CARVEDILOL

REACTIONS (4)
  - Febrile neutropenia [None]
  - Atrial fibrillation [None]
  - Anaemia [None]
  - Arrhythmia [None]

NARRATIVE: CASE EVENT DATE: 20090723
